FAERS Safety Report 6181087-5 (Version None)
Quarter: 2009Q2

REPORT INFORMATION
  Report Type: 
  Country: None (occurrence: None)
  Receive Date: 20090504
  Receipt Date: 20090504
  Transmission Date: 20091009
  Serious: No
  Sender: FDA-Public Use
  Company Number: None

PATIENT
  Sex: Female
  Weight: 56.6996 kg

DRUGS (1)
  1. BUPROPION HCL [Suspect]
     Indication: MAJOR DEPRESSION
     Dosage: 300 MG ONCE DAILEY PO
     Route: 048
     Dates: start: 20070207, end: 20071229

REACTIONS (10)
  - DEPRESSION [None]
  - DISEASE RECURRENCE [None]
  - DRUG INEFFECTIVE [None]
  - PRODUCT COATING ISSUE [None]
  - PRODUCT SIZE ISSUE [None]
  - PRODUCT SUBSTITUTION ISSUE [None]
  - TABLET ISSUE [None]
  - TINNITUS [None]
  - VISION BLURRED [None]
  - WEIGHT INCREASED [None]
